FAERS Safety Report 26004321 (Version 1)
Quarter: 2025Q4

REPORT INFORMATION
  Report Type: Report from Study
  Country: EU (occurrence: EU)
  Receive Date: 20251106
  Receipt Date: 20251106
  Transmission Date: 20260118
  Serious: Yes (Other)
  Sender: ROCHE
  Company Number: EU-ROCHE-10000422462

PATIENT

DRUGS (6)
  1. ATEZOLIZUMAB [Suspect]
     Active Substance: ATEZOLIZUMAB
     Indication: Neoplasm malignant
     Route: 065
  2. CEMIPLIMAB [Suspect]
     Active Substance: CEMIPLIMAB
     Indication: Neoplasm malignant
     Route: 065
  3. DURVALUMAB [Suspect]
     Active Substance: DURVALUMAB
     Indication: Neoplasm malignant
     Route: 065
  4. NIVOLUMAB [Suspect]
     Active Substance: NIVOLUMAB
     Indication: Neoplasm malignant
     Route: 065
  5. IPILIMUMAB [Suspect]
     Active Substance: IPILIMUMAB
     Indication: Neoplasm malignant
     Route: 065
  6. PEMBROLIZUMAB [Suspect]
     Active Substance: PEMBROLIZUMAB
     Indication: Neoplasm malignant
     Route: 065

REACTIONS (17)
  - Colitis [Unknown]
  - Hepatitis [Unknown]
  - Pancreatitis [Unknown]
  - Thyroiditis [Unknown]
  - Hypophysitis [Unknown]
  - Adrenalitis [Unknown]
  - Pruritus [Unknown]
  - Dermatitis [Unknown]
  - Nephritis [Unknown]
  - Inner ear inflammation [Unknown]
  - Pneumonitis [Unknown]
  - Cholangitis [Unknown]
  - Diabetes mellitus [Unknown]
  - Myositis [Unknown]
  - Serositis [Unknown]
  - Encephalitis [Unknown]
  - Lichenification [Unknown]
